FAERS Safety Report 4909254-6 (Version None)
Quarter: 2006Q1

REPORT INFORMATION
  Report Type: 
  Country: None (occurrence: None)
  Receive Date: 20060213
  Receipt Date: 20060202
  Transmission Date: 20060701
  Serious: Yes (Hospitalization)
  Sender: FDA-Public Use
  Company Number: 2006AP00573

PATIENT
  Age: 48 Year
  Sex: Male

DRUGS (7)
  1. CRESTOR [Suspect]
     Indication: HYPERCHOLESTEROLAEMIA
     Route: 048
     Dates: start: 20051205, end: 20060130
  2. DIOVAN [Suspect]
     Indication: CARDIAC FAILURE
     Route: 048
     Dates: start: 20050101, end: 20060130
  3. ALLEGRA [Suspect]
     Indication: PRURITUS
     Route: 048
     Dates: start: 20051107, end: 20060130
  4. URINORM [Suspect]
     Dates: end: 20060130
  5. ARTIST [Concomitant]
     Indication: CARDIAC FAILURE
     Route: 048
     Dates: start: 20050101
  6. LASIX [Concomitant]
     Route: 048
     Dates: start: 20050101
  7. NOIDOUBLE [Concomitant]
     Route: 048
     Dates: start: 20050101

REACTIONS (12)
  - ALCOHOL USE [None]
  - BACK PAIN [None]
  - BLOOD CHOLESTEROL INCREASED [None]
  - BLOOD PRESSURE DECREASED [None]
  - DIALYSIS [None]
  - HYPOCHLORAEMIA [None]
  - HYPOKALAEMIA [None]
  - HYPONATRAEMIA [None]
  - METABOLIC DISORDER [None]
  - RENAL FAILURE ACUTE [None]
  - RENAL TUBULAR DISORDER [None]
  - UPPER RESPIRATORY TRACT INFLAMMATION [None]
